FAERS Safety Report 9951512 (Version 1)
Quarter: 2014Q1

REPORT INFORMATION
  Report Type: Report from Study
  Country: US (occurrence: US)
  Receive Date: 20140304
  Receipt Date: 20140304
  Transmission Date: 20141002
  Serious: No
  Sender: FDA-Public Use
  Company Number: US-ABBVIE-13P-163-1075584-00

PATIENT
  Age: 39 Year
  Sex: Female

DRUGS (3)
  1. HUMIRA [Suspect]
     Indication: CROHN^S DISEASE
     Dates: start: 20130225
  2. IMURAN [Concomitant]
     Indication: CROHN^S DISEASE
     Dosage: 100 MG DAILY
  3. PREDNISONE [Concomitant]
     Indication: CROHN^S DISEASE
     Dosage: 4 MG DAILY
     Route: 048

REACTIONS (2)
  - Menstruation delayed [Not Recovered/Not Resolved]
  - Menstruation delayed [Not Recovered/Not Resolved]
